FAERS Safety Report 15150514 (Version 5)
Quarter: 2018Q4

REPORT INFORMATION
  Report Type: Report from Study
  Country: IT (occurrence: IT)
  Receive Date: 20180716
  Receipt Date: 20181010
  Transmission Date: 20190204
  Serious: Yes (Hospitalization)
  Sender: FDA-Public Use
  Company Number: IT-TEVA-2018-IT-925440

PATIENT
  Age: 70 Year
  Sex: Male

DRUGS (11)
  1. OMNIC 0,4 MG, CAPSULE RIGIDE A RILASCIO MODIFICATO [Concomitant]
     Route: 048
     Dates: start: 20180301, end: 20180521
  2. ESCITALOPRAM OXALATE. [Concomitant]
     Active Substance: ESCITALOPRAM OXALATE
     Dosage: 5 MILLIGRAM DAILY;
     Route: 048
     Dates: start: 20180301, end: 20180521
  3. XANAX [Concomitant]
     Active Substance: ALPRAZOLAM
     Route: 048
     Dates: start: 20180301, end: 20180521
  4. PANTOPRAZOLE SODIUM. [Concomitant]
     Active Substance: PANTOPRAZOLE SODIUM
     Dosage: 20 MILLIGRAM DAILY;
     Route: 048
     Dates: start: 20180301, end: 20180521
  5. LEVOFLOXACIN HEMIHYDRATE [Suspect]
     Active Substance: LEVOFLOXACIN
     Indication: URINARY TRACT INFECTION
     Dosage: 500 MILLIGRAM DAILY;
     Route: 048
     Dates: start: 20180519, end: 20180521
  6. MADOPAR 200 MG + 50 MG COMPRESSE DIVISIBILI [Concomitant]
     Dosage: 1 DOSAGE FORMS DAILY;
     Route: 048
     Dates: start: 20180301, end: 20180521
  7. BISOPROLOL HEMIFUMARATE [Concomitant]
     Active Substance: BISOPROLOL FUMARATE
     Dosage: 2.5 MILLIGRAM DAILY;
     Route: 048
     Dates: start: 20180301, end: 20180521
  8. MESALAZINE [Concomitant]
     Active Substance: MESALAMINE
     Dosage: 2400 MILLIGRAM DAILY;
     Route: 048
     Dates: start: 20180301, end: 20180521
  9. ATORVASTATIN CALCIUM TRIHYDRATE [Concomitant]
     Active Substance: ATORVASTATIN CALCIUM
     Dosage: 20 MILLIGRAM DAILY;
     Route: 048
     Dates: start: 20180301, end: 20180521
  10. GABAPENTIN. [Concomitant]
     Active Substance: GABAPENTIN
     Dosage: 200 MILLIGRAM DAILY;
     Route: 048
     Dates: start: 20180301, end: 20180521
  11. CLOPIDOGREL [Concomitant]
     Active Substance: CLOPIDOGREL BISULFATE
     Dosage: 75 MILLIGRAM DAILY;
     Route: 048
     Dates: start: 20180301, end: 20180521

REACTIONS (2)
  - Pyrexia [Recovered/Resolved]
  - Skin lesion [Recovered/Resolved]

NARRATIVE: CASE EVENT DATE: 20180520
